FAERS Safety Report 19242011 (Version 1)
Quarter: 2021Q2

REPORT INFORMATION
  Report Type: Spontaneous
  Country: US (occurrence: US)
  Receive Date: 20210505
  Receipt Date: 20210505
  Transmission Date: 20210717
  Serious: Yes (Hospitalization, Disabling)
  Sender: FDA-Public Use
  Company Number: None

PATIENT
  Age: 32 Year
  Sex: Female

DRUGS (1)
  1. HYALURONIDASE [Suspect]
     Active Substance: HYALURONIDASE

REACTIONS (4)
  - Pain [None]
  - Oral discomfort [None]
  - Vascular occlusion [None]
  - Crying [None]

NARRATIVE: CASE EVENT DATE: 20210425
